FAERS Safety Report 25072313 (Version 2)
Quarter: 2025Q1

REPORT INFORMATION
  Report Type: Report from Study
  Country: US (occurrence: US)
  Receive Date: 20250313
  Receipt Date: 20250318
  Transmission Date: 20250408
  Serious: Yes (Other)
  Sender: JOHNSON AND JOHNSON
  Company Number: US-JNJFOC-20250323325

PATIENT
  Age: 4 Decade
  Sex: Female

DRUGS (3)
  1. STELARA [Suspect]
     Active Substance: USTEKINUMAB
     Indication: Crohn^s disease
     Route: 058
     Dates: end: 202412
  2. STELARA [Suspect]
     Active Substance: USTEKINUMAB
  3. STELARA [Suspect]
     Active Substance: USTEKINUMAB
     Indication: Crohn^s disease
     Route: 040
     Dates: start: 20240727

REACTIONS (2)
  - Crohn^s disease [Not Recovered/Not Resolved]
  - Therapeutic product effect decreased [Unknown]
